FAERS Safety Report 5774772-8 (Version None)
Quarter: 2008Q2

REPORT INFORMATION
  Report Type: 
  Country: None (occurrence: None)
  Receive Date: 20080612
  Receipt Date: 20080605
  Transmission Date: 20081010
  Serious: No
  Sender: FDA-Public Use
  Company Number: DAV-AE-NAP-08-003

PATIENT
  Age: 79 Year
  Sex: Female

DRUGS (2)
  1. NAPROXEN [Suspect]
     Indication: INFLAMMATION
  2. METFORMIN HCL [Concomitant]

REACTIONS (6)
  - BLOOD URINE PRESENT [None]
  - CATARACT OPERATION [None]
  - EYE HAEMORRHAGE [None]
  - PAIN IN EXTREMITY [None]
  - RENAL HAEMORRHAGE [None]
  - VISION BLURRED [None]
